FAERS Safety Report 9276883 (Version 1)
Quarter: 2013Q2

REPORT INFORMATION
  Report Type: Spontaneous
  Country: US (occurrence: US)
  Receive Date: 20130507
  Receipt Date: 20130507
  Transmission Date: 20140414
  Serious: No
  Sender: FDA-Public Use
  Company Number: US-ASTRAZENECA-2013SE24649

PATIENT
  Age: 53 Year
  Sex: Female

DRUGS (1)
  1. NEXIUM [Suspect]
     Indication: GASTROOESOPHAGEAL REFLUX DISEASE
     Route: 048
     Dates: start: 2008, end: 201303

REACTIONS (3)
  - Gastrooesophageal reflux disease [Recovering/Resolving]
  - Oesophagitis [Unknown]
  - Oesophageal disorder [Unknown]
